FAERS Safety Report 9389062 (Version 3)
Quarter: 2013Q4

REPORT INFORMATION
  Report Type: Spontaneous
  Country: FR (occurrence: FR)
  Receive Date: 20130708
  Receipt Date: 20131101
  Transmission Date: 20140711
  Serious: Yes (Congenital Anomaly, Other)
  Sender: FDA-Public Use
  Company Number: PHHY2013FR071657

PATIENT
  Sex: Male
  Weight: 2.4 kg

DRUGS (1)
  1. GLIVEC [Suspect]
     Dosage: FOETAL EXPOSURE VIA FATHER

REACTIONS (6)
  - Heart disease congenital [Unknown]
  - Double outlet right ventricle [Unknown]
  - Growth retardation [Unknown]
  - Atrial septal defect [Unknown]
  - Ventricular septal defect [Unknown]
  - Exposure via father [Unknown]
